FAERS Safety Report 19763398 (Version 2)
Quarter: 2021Q3

REPORT INFORMATION
  Report Type: Spontaneous
  Country: DE (occurrence: DE)
  Receive Date: 20210830
  Receipt Date: 20210903
  Transmission Date: 20211014
  Serious: Yes (Hospitalization, Other)
  Sender: FDA-Public Use
  Company Number: DE-MYLANLABS-2021M1055763

PATIENT
  Age: 66 Year
  Sex: Female

DRUGS (7)
  1. RESLIZUMAB [Suspect]
     Active Substance: RESLIZUMAB
     Indication: PRODUCT USED FOR UNKNOWN INDICATION
     Dosage: UNK, 4XW (UNK UNK, Q4W)
     Dates: start: 20170405, end: 201803
  2. BENRALIZUMAB. [Suspect]
     Active Substance: BENRALIZUMAB
     Indication: ASTHMA
     Dosage: 30 MILLIGRAM (30 MG,EVERY 2ND MONTH)
     Dates: start: 20180417
  3. PREDNISOLONE. [Suspect]
     Active Substance: PREDNISOLONE
     Dosage: 4 MILLIGRAM, QD (4 MG, QD)
     Route: 065
  4. RESLIZUMAB [Suspect]
     Active Substance: RESLIZUMAB
     Dosage: UNK (UNK)
     Dates: start: 2018, end: 202004
  5. PREDNISOLONE. [Suspect]
     Active Substance: PREDNISOLONE
     Indication: PRODUCT USED FOR UNKNOWN INDICATION
     Dosage: 15 MILLIGRAM, QD (15 MG, QD)
     Route: 065
     Dates: start: 2015
  6. DUPIXENT [Suspect]
     Active Substance: DUPILUMAB
     Indication: PRODUCT USED FOR UNKNOWN INDICATION
     Dosage: UNK
     Dates: start: 202004, end: 20200818
  7. MEPOLIZUMAB [Suspect]
     Active Substance: MEPOLIZUMAB
     Indication: PRODUCT USED FOR UNKNOWN INDICATION
     Dosage: UNK UNK, 4XW
     Route: 058
     Dates: start: 20160421

REACTIONS (14)
  - Chest pain [Recovered/Resolved]
  - Cough [Unknown]
  - Pain in extremity [Unknown]
  - Headache [Recovered/Resolved]
  - Cerebral infarction [Unknown]
  - Pneumonia [Unknown]
  - Pain [Unknown]
  - Cutaneous vasculitis [Unknown]
  - Arthralgia [Recovering/Resolving]
  - Hemiparesis [Unknown]
  - Asthma [Unknown]
  - Eosinophilia [Unknown]
  - Eosinophil count decreased [Unknown]
  - Osteopenia [Unknown]

NARRATIVE: CASE EVENT DATE: 2020
